FAERS Safety Report 20912465 (Version 1)
Quarter: 2022Q2

REPORT INFORMATION
  Report Type: Spontaneous
  Country: US (occurrence: US)
  Receive Date: 20220603
  Receipt Date: 20220603
  Transmission Date: 20220721
  Serious: Yes (Other)
  Sender: FDA-Public Use
  Company Number: US-PFIZER INC-202200787657

PATIENT
  Age: 78 Year
  Sex: Male
  Weight: 81.65 kg

DRUGS (1)
  1. PAXLOVID [Suspect]
     Active Substance: NIRMATRELVIR\RITONAVIR
     Indication: COVID-19 treatment
     Dosage: UNK
     Dates: start: 20220529

REACTIONS (8)
  - Hallucination [Unknown]
  - Abnormal dreams [Unknown]
  - Nightmare [Unknown]
  - Condition aggravated [Unknown]
  - Anxiety [Unknown]
  - Nausea [Unknown]
  - Dysgeusia [Unknown]
  - Insomnia [Unknown]

NARRATIVE: CASE EVENT DATE: 20220529
